FAERS Safety Report 7656711-8 (Version None)
Quarter: 2011Q3

REPORT INFORMATION
  Report Type: 
  Country: None (occurrence: None)
  Receive Date: 20110804
  Receipt Date: 20110801
  Transmission Date: 20111222
  Serious: No
  Sender: FDA-Public Use
  Company Number: US-PFIZER INC-2011175275

PATIENT
  Sex: Female
  Weight: 54.875 kg

DRUGS (2)
  1. LIPITOR [Concomitant]
     Dosage: 10 MG, 1X/DAY
  2. IBUPROFEN [Suspect]
     Dosage: 200 MG, UNK
     Route: 048
     Dates: start: 20110731, end: 20110801

REACTIONS (1)
  - INSOMNIA [None]
